FAERS Safety Report 10598972 (Version 3)
Quarter: 2015Q2

REPORT INFORMATION
  Report Type: Report from Study
  Country: AR (occurrence: AR)
  Receive Date: 20141121
  Receipt Date: 20150417
  Transmission Date: 20150821
  Serious: Yes (Disabling, Other)
  Sender: FDA-Public Use
  Company Number: AR-BRISTOL-MYERS SQUIBB COMPANY-21596358

PATIENT
  Sex: Female

DRUGS (1)
  1. APIXABAN [Suspect]
     Active Substance: APIXABAN
     Indication: PRODUCT USED FOR UNKNOWN INDICATION
     Dosage: 5 MG, QD
     Route: 065
     Dates: start: 201405

REACTIONS (4)
  - Pain [Recovered/Resolved]
  - Gastrointestinal inflammation [Unknown]
  - Malaise [Unknown]
  - Muscle contracture [Unknown]

NARRATIVE: CASE EVENT DATE: 2014
